FAERS Safety Report 6996199-3 (Version None)
Quarter: 2010Q3

REPORT INFORMATION
  Report Type: 
  Country: None (occurrence: None)
  Receive Date: 20100918
  Receipt Date: 20090316
  Transmission Date: 20110219
  Serious: Yes (Disabling)
  Sender: FDA-Public Use
  Company Number: US-WYE-H07398608

PATIENT
  Sex: Male
  Weight: 79.45 kg

DRUGS (5)
  1. EFFEXOR XR [Suspect]
     Indication: GENERALISED ANXIETY DISORDER
     Route: 048
     Dates: start: 20081120, end: 20081202
  2. EFFEXOR XR [Suspect]
     Dates: start: 20081203, end: 20081214
  3. EFFEXOR XR [Suspect]
     Route: 048
     Dates: start: 20081215, end: 20081217
  4. EFFEXOR XR [Suspect]
     Route: 048
     Dates: start: 20081219, end: 20081219
  5. XANAX [Concomitant]
     Indication: ANXIETY
     Dosage: 0.25 MG ^TID^ PRN
     Route: 048
     Dates: start: 20060101

REACTIONS (9)
  - CONSTIPATION [None]
  - DRY MOUTH [None]
  - DYSURIA [None]
  - FEELING COLD [None]
  - HEADACHE [None]
  - PAIN [None]
  - PYREXIA [None]
  - SOMNOLENCE [None]
  - URINARY HESITATION [None]
